FAERS Safety Report 8786240 (Version 1)
Quarter: 2012Q4

REPORT INFORMATION
  Report Type: Spontaneous
  Country: BR (occurrence: None)
  Receive Date: 20120905
  Receipt Date: 20120905
  Transmission Date: 20130627
  Serious: Yes (Other)
  Sender: FDA-Public Use
  Company Number: BR-GDP-11412622

PATIENT
  Age: 34 Year
  Sex: Female
  Weight: 88 kg

DRUGS (1)
  1. DIFFERIN [Suspect]
     Indication: ACNE
     Dosage: 1 DF QD Topical
     Route: 061
     Dates: start: 20111111, end: 20111115

REACTIONS (5)
  - Erythema [None]
  - Pruritus [None]
  - Burning sensation [None]
  - Maternal exposure before pregnancy [None]
  - Abortion spontaneous [None]
